FAERS Safety Report 23927353 (Version 1)
Quarter: 2024Q2

REPORT INFORMATION
  Report Type: Report from Study
  Country: US (occurrence: US)
  Receive Date: 20240531
  Receipt Date: 20240531
  Transmission Date: 20240716
  Serious: No
  Sender: FDA-Public Use
  Company Number: US-AstraZeneca-CH-00633604A

PATIENT
  Sex: Male

DRUGS (1)
  1. ULTOMIRIS [Suspect]
     Active Substance: RAVULIZUMAB-CWVZ
     Indication: Product used for unknown indication
     Dosage: UNK
     Route: 065

REACTIONS (7)
  - Product supply issue [Unknown]
  - Fatigue [Recovering/Resolving]
  - Musculoskeletal discomfort [Recovering/Resolving]
  - Vision blurred [Recovering/Resolving]
  - Balance disorder [Recovering/Resolving]
  - Dysphagia [Recovering/Resolving]
  - Cough [Recovering/Resolving]
